FAERS Safety Report 4475330-8 (Version None)
Quarter: 2004Q4

REPORT INFORMATION
  Report Type: 
  Country: None (occurrence: None)
  Receive Date: 20041015
  Receipt Date: 20041008
  Transmission Date: 20050328
  Serious: Yes (Life-Threatening)
  Sender: FDA-Public Use
  Company Number: 200413780FR

PATIENT
  Age: 80 Year
  Sex: Male
  Weight: 50 kg

DRUGS (5)
  1. LANTUS [Suspect]
     Indication: DIABETES MELLITUS
     Route: 058
     Dates: start: 20040520
  2. SOLU-MEDROL [Suspect]
     Indication: OSTEOARTHRITIS
     Route: 042
  3. CALCIPARINE [Suspect]
     Route: 058
     Dates: start: 20040512, end: 20040615
  4. SOLUTIONS FOR PARENTERAL NUTRITION [Suspect]
     Indication: MALNUTRITION
     Route: 042
     Dates: start: 20040514, end: 20040618
  5. ORBENIN CAP [Suspect]
     Indication: SEPSIS
     Route: 042
     Dates: start: 20040609, end: 20040616

REACTIONS (5)
  - INFLAMMATION [None]
  - MUSCULOSKELETAL PAIN [None]
  - PYREXIA [None]
  - THROMBOCYTOPENIA [None]
  - VISUAL DISTURBANCE [None]
